FAERS Safety Report 11308733 (Version 1)
Quarter: 2015Q3

REPORT INFORMATION
  Report Type: Spontaneous
  Country: FR (occurrence: FR)
  Receive Date: 20150724
  Receipt Date: 20150724
  Transmission Date: 20151125
  Serious: Yes (Death)
  Sender: FDA-Public Use
  Company Number: FR-CIPLA LTD.-2015FR05911

PATIENT

DRUGS (22)
  1. CARBOPLATIN. [Suspect]
     Active Substance: CARBOPLATIN
     Indication: LI-FRAUMENI SYNDROME
  2. EPIRUBICIN [Suspect]
     Active Substance: EPIRUBICIN
     Indication: RHABDOMYOSARCOMA
     Route: 065
  3. CYCLOPHOSPHAMIDE. [Suspect]
     Active Substance: CYCLOPHOSPHAMIDE
     Indication: LI-FRAUMENI SYNDROME
  4. IFOSFAMIDE. [Suspect]
     Active Substance: IFOSFAMIDE
     Indication: LI-FRAUMENI SYNDROME
  5. IRINOTECAN [Suspect]
     Active Substance: IRINOTECAN
     Indication: LI-FRAUMENI SYNDROME
  6. TEMOZOLOMIDE. [Suspect]
     Active Substance: TEMOZOLOMIDE
     Indication: LI-FRAUMENI SYNDROME
  7. VINORELBINE [Suspect]
     Active Substance: VINORELBINE\VINORELBINE TARTRATE
     Indication: RHABDOMYOSARCOMA
     Dosage: UNK
     Route: 065
  8. VINCRISTINE [Suspect]
     Active Substance: VINCRISTINE
     Indication: RHABDOMYOSARCOMA
     Dosage: UNK
     Route: 065
  9. TEMOZOLOMIDE. [Suspect]
     Active Substance: TEMOZOLOMIDE
     Indication: RHABDOMYOSARCOMA
     Dosage: UNK
     Route: 065
  10. ACTINOMYCIN D [Suspect]
     Active Substance: DACTINOMYCIN
     Indication: RHABDOMYOSARCOMA
     Route: 065
  11. IRINOTECAN [Suspect]
     Active Substance: IRINOTECAN
     Indication: RHABDOMYOSARCOMA
     Route: 065
  12. EPIRUBICIN [Suspect]
     Active Substance: EPIRUBICIN
     Indication: LI-FRAUMENI SYNDROME
  13. CYCLOPHOSPHAMIDE. [Suspect]
     Active Substance: CYCLOPHOSPHAMIDE
     Indication: RHABDOMYOSARCOMA
     Route: 065
  14. ETOSID [Suspect]
     Active Substance: ETOPOSIDE
     Indication: RHABDOMYOSARCOMA
     Dosage: UNK
     Route: 048
  15. TENOPOSIDE [Suspect]
     Active Substance: TENIPOSIDE
     Indication: LI-FRAUMENI SYNDROME
  16. ACTINOMYCIN D [Suspect]
     Active Substance: DACTINOMYCIN
     Indication: LI-FRAUMENI SYNDROME
  17. CARBOPLATIN. [Suspect]
     Active Substance: CARBOPLATIN
     Indication: RHABDOMYOSARCOMA
     Route: 065
  18. ETOSID [Suspect]
     Active Substance: ETOPOSIDE
     Indication: LI-FRAUMENI SYNDROME
  19. VINCRISTINE [Suspect]
     Active Substance: VINCRISTINE
     Indication: LI-FRAUMENI SYNDROME
  20. VINORELBINE [Suspect]
     Active Substance: VINORELBINE\VINORELBINE TARTRATE
     Indication: LI-FRAUMENI SYNDROME
  21. TENOPOSIDE [Suspect]
     Active Substance: TENIPOSIDE
     Indication: RHABDOMYOSARCOMA
     Dosage: UNK
     Route: 065
  22. IFOSFAMIDE. [Suspect]
     Active Substance: IFOSFAMIDE
     Indication: RHABDOMYOSARCOMA
     Route: 065

REACTIONS (1)
  - Osteosarcoma [Fatal]
